FAERS Safety Report 14125596 (Version 1)
Quarter: 2017Q4

REPORT INFORMATION
  Report Type: Spontaneous
  Country: CN (occurrence: CN)
  Receive Date: 20171025
  Receipt Date: 20171025
  Transmission Date: 20180321
  Serious: Yes (Other)
  Sender: FDA-Public Use
  Company Number: CN-BAYER-2017-198977

PATIENT
  Age: 79 Year
  Sex: Male

DRUGS (3)
  1. HAEMOCOAGULASE AGKISTRODON (BATROXOBIN) [Suspect]
     Active Substance: BATROXOBIN
     Indication: GASTROINTESTINAL HAEMORRHAGE
     Dosage: 2 U, UNK
  2. ACETYLSALICYLIC ACID({=100 MG) [Suspect]
     Active Substance: ASPIRIN
     Dosage: UNK
  3. SALBUTAMOL [Concomitant]
     Active Substance: ALBUTEROL

REACTIONS (11)
  - Melaena [Not Recovered/Not Resolved]
  - Haemoglobin decreased [None]
  - Gastrointestinal haemorrhage [None]
  - International normalised ratio decreased [None]
  - Respiratory failure [Not Recovered/Not Resolved]
  - Blood albumin decreased [None]
  - Haematocrit decreased [None]
  - Prothrombin level increased [None]
  - Hypofibrinogenaemia [Recovered/Resolved]
  - Activated partial thromboplastin time prolonged [None]
  - Blood pressure increased [None]

NARRATIVE: CASE EVENT DATE: 20170607
